FAERS Safety Report 13090941 (Version 2)
Quarter: 2017Q2

REPORT INFORMATION
  Report Type: Spontaneous
  Country: DE (occurrence: DE)
  Receive Date: 20170106
  Receipt Date: 20170419
  Transmission Date: 20170830
  Serious: Yes (Hospitalization)
  Sender: FDA-Public Use
  Company Number: DE-JNJFOC-20161222863

PATIENT
  Age: 3 Decade
  Sex: Female
  Weight: 80 kg

DRUGS (2)
  1. IBUPROFEN. [Suspect]
     Active Substance: IBUPROFEN
     Indication: MENSTRUAL DISCOMFORT
     Dosage: IT WAS ALSO REPORTED THAT REACTION REAPPEARED AFTER REINTRODUCTION (APPLICATION FOR SEVERAL DAYS).
     Route: 048
  2. IBUPROFEN. [Suspect]
     Active Substance: IBUPROFEN
     Route: 048

REACTIONS (4)
  - International normalised ratio increased [Not Recovered/Not Resolved]
  - Hepatitis acute [Not Recovered/Not Resolved]
  - Blood bilirubin increased [Not Recovered/Not Resolved]
  - Hepatic function abnormal [Not Recovered/Not Resolved]

NARRATIVE: CASE EVENT DATE: 20161217
